FAERS Safety Report 7913206-1 (Version None)
Quarter: 2011Q4

REPORT INFORMATION
  Report Type: 
  Country: None (occurrence: None)
  Receive Date: 20111114
  Receipt Date: 20111109
  Transmission Date: 20120403
  Serious: Yes (Life-Threatening, Hospitalization, Other)
  Sender: FDA-Public Use
  Company Number: JP-ABBOTT-11P-087-0844019-00

PATIENT
  Sex: Male
  Weight: 74.7 kg

DRUGS (8)
  1. HUMIRA [Suspect]
     Indication: CROHN'S DISEASE
     Route: 058
     Dates: start: 20110214, end: 20110214
  2. HUMIRA [Suspect]
     Dates: start: 20110228, end: 20110228
  3. MESALAMINE [Concomitant]
     Indication: CROHN'S DISEASE
     Route: 048
  4. AZATHIOPRINE [Concomitant]
     Indication: CROHN'S DISEASE
     Route: 048
  5. TPN [Concomitant]
     Indication: CROHN'S DISEASE
     Route: 048
  6. CLOSTRIDIUM BUTYRICUM [Concomitant]
     Indication: CROHN'S DISEASE
     Route: 048
  7. DIFLUCORTOLONE VALERATE/LIDOCAINE [Concomitant]
     Indication: CROHN'S DISEASE
     Route: 061
  8. HUMIRA [Suspect]
     Dates: start: 20110314

REACTIONS (6)
  - MALNUTRITION [None]
  - STAPHYLOCOCCAL SEPSIS [None]
  - HYPOALBUMINAEMIA [None]
  - DEVICE RELATED INFECTION [None]
  - GASTROINTESTINAL INFLAMMATION [None]
  - MALABSORPTION [None]
